FAERS Safety Report 6086118-9 (Version None)
Quarter: 2009Q1

REPORT INFORMATION
  Report Type: 
  Country: None (occurrence: None)
  Receive Date: 20090220
  Receipt Date: 20090206
  Transmission Date: 20090719
  Serious: Yes (Life-Threatening, Hospitalization, Disabling)
  Sender: FDA-Public Use
  Company Number: FR-GENENTECH-277345

PATIENT
  Sex: Female

DRUGS (9)
  1. AVASTIN [Suspect]
     Indication: BREAST CANCER
     Dosage: 15 MG/KG, UNK
     Route: 042
     Dates: start: 20080407, end: 20081002
  2. TAXOTERE [Suspect]
     Indication: BREAST CANCER
     Dosage: UNK
     Dates: start: 20080619, end: 20081002
  3. ARIMIDEX [Suspect]
     Indication: BREAST CANCER
     Dosage: UNK
     Dates: start: 20081021
  4. LYTOS [Concomitant]
     Indication: DRUG USE FOR UNKNOWN INDICATION
     Dosage: UNK
     Dates: start: 20080819, end: 20081116
  5. LEXOMIL [Concomitant]
     Indication: DRUG USE FOR UNKNOWN INDICATION
     Dosage: UNK
     Dates: start: 20080407
  6. DECAPEPTYL [Concomitant]
     Indication: DRUG USE FOR UNKNOWN INDICATION
     Dosage: UNK
     Dates: start: 20081021
  7. OMEPRAZOLE [Concomitant]
     Indication: DRUG USE FOR UNKNOWN INDICATION
  8. BISPHOSPHONATE (UNK INGREDIENTS) [Concomitant]
     Indication: DRUG USE FOR UNKNOWN INDICATION
  9. HORMONE THERAPY (UNK INGREDIENTS) [Concomitant]
     Indication: DRUG USE FOR UNKNOWN INDICATION

REACTIONS (1)
  - CARDIOGENIC SHOCK [None]
